FAERS Safety Report 5133772-1 (Version None)
Quarter: 2006Q4

REPORT INFORMATION
  Report Type: 
  Country: None (occurrence: None)
  Receive Date: 20061018
  Receipt Date: 20061006
  Transmission Date: 20070319
  Serious: Yes (Other)
  Sender: FDA-Public Use
  Company Number: 2006092275

PATIENT
  Age: 71 Year
  Sex: Female

DRUGS (9)
  1. CELEBREX [Suspect]
     Indication: ARTHRITIS
  2. BEXTRA [Suspect]
     Indication: ARTHRITIS
  3. SYNTHROID [Concomitant]
  4. BENICAR [Concomitant]
  5. PRAVACHOL [Concomitant]
  6. DYAZIDE [Concomitant]
  7. NIASPAN [Concomitant]
  8. PROTONIX [Concomitant]
  9. VICODIN [Concomitant]

REACTIONS (7)
  - ARTHRITIS [None]
  - DRUG INEFFECTIVE [None]
  - INTERVERTEBRAL DISC PROTRUSION [None]
  - MOBILITY DECREASED [None]
  - NERVE COMPRESSION [None]
  - POOR QUALITY DRUG ADMINISTERED [None]
  - WEIGHT INCREASED [None]
